FAERS Safety Report 5764656-3 (Version None)
Quarter: 2008Q2

REPORT INFORMATION
  Report Type: 
  Country: None (occurrence: None)
  Receive Date: 20080611
  Receipt Date: 20080603
  Transmission Date: 20081010
  Serious: Yes (Other)
  Sender: FDA-Public Use
  Company Number: PHEH2008US05042

PATIENT
  Sex: Female
  Weight: 99.773 kg

DRUGS (6)
  1. TEKTURNA [Suspect]
     Indication: HYPERTENSION
     Dosage: 150 MG, QD
     Dates: start: 20071001, end: 20071101
  2. TEKTURNA [Suspect]
     Dosage: 300 MG, QD
     Dates: start: 20071101
  3. ATENOLOL [Concomitant]
  4. LYRICA [Concomitant]
  5. LEVOXYL [Concomitant]
  6. PROTONIX [Concomitant]

REACTIONS (3)
  - ANGINA PECTORIS [None]
  - HYPERTENSION [None]
  - PALPITATIONS [None]
